FAERS Safety Report 9797578 (Version 1)
Quarter: 2014Q1

REPORT INFORMATION
  Report Type: Report from Study
  Country: IT (occurrence: IT)
  Receive Date: 20140106
  Receipt Date: 20140106
  Transmission Date: 20141002
  Serious: Yes (Hospitalization)
  Sender: FDA-Public Use
  Company Number: IT-ROCHE-1325220

PATIENT
  Sex: Female

DRUGS (5)
  1. ENFUVIRTIDE [Suspect]
     Indication: HIV INFECTION
     Route: 065
  2. TIPRANAVIR [Suspect]
     Indication: HIV INFECTION
     Route: 065
  3. ZIDOVUDINE [Suspect]
     Indication: HIV INFECTION
     Route: 065
  4. TENOFOVIR [Suspect]
     Indication: HIV INFECTION
     Route: 065
  5. LAMIVUDINE [Suspect]
     Indication: HIV INFECTION
     Route: 065

REACTIONS (1)
  - Pyrexia [Recovered/Resolved]
